FAERS Safety Report 4479943-9 (Version None)
Quarter: 2004Q3

REPORT INFORMATION
  Report Type: 
  Country: None (occurrence: None)
  Receive Date: 20040923
  Receipt Date: 20040604
  Transmission Date: 20050211
  Serious: No
  Sender: FDA-Public Use
  Company Number: USA040668859

PATIENT
  Age: 77 Year
  Sex: Female
  Weight: 62 kg

DRUGS (3)
  1. FORTEO [Suspect]
     Indication: OSTEOPOROSIS
     Dosage: 20 UG DAY
     Dates: start: 20040419, end: 20040604
  2. EVISTA [Suspect]
     Indication: OSTEOPOROSIS
     Dosage: 60 MG DAY
     Dates: start: 20020101, end: 20040418
  3. ACTONEL [Concomitant]

REACTIONS (5)
  - ASTHENIA [None]
  - BODY HEIGHT DECREASED [None]
  - DIZZINESS [None]
  - INJECTION SITE HAEMORRHAGE [None]
  - PALPITATIONS [None]
